FAERS Safety Report 8243360-6 (Version None)
Quarter: 2012Q1

REPORT INFORMATION
  Report Type: 
  Country: None (occurrence: None)
  Receive Date: 20120329
  Receipt Date: 20120320
  Transmission Date: 20120608
  Serious: Yes (Other)
  Sender: FDA-Public Use
  Company Number: US-ELI_LILLY_AND_COMPANY-US201203006094

PATIENT
  Sex: Female

DRUGS (3)
  1. HUMULIN N [Suspect]
     Indication: DIABETES MELLITUS
     Dosage: 20 U, BID
  2. NOVOLOG [Concomitant]
     Dosage: UNK, PRN
  3. GLIPIZIDE [Concomitant]
     Dosage: UNK

REACTIONS (7)
  - BLINDNESS [None]
  - CARDIAC OPERATION [None]
  - CEREBROVASCULAR ACCIDENT [None]
  - MACULAR DEGENERATION [None]
  - VARICOSE VEIN [None]
  - RENAL FAILURE [None]
  - DEHYDRATION [None]
